FAERS Safety Report 9322837 (Version 4)
Quarter: 2014Q1

REPORT INFORMATION
  Report Type: Spontaneous
  Country: US (occurrence: US)
  Receive Date: 20130601
  Receipt Date: 20140114
  Transmission Date: 20141002
  Serious: Yes (Hospitalization, Disabling)
  Sender: FDA-Public Use
  Company Number: US-ASTRAZENECA-2013SE38656

PATIENT
  Age: 37 Year
  Sex: Female
  Weight: 85.3 kg

DRUGS (25)
  1. NEXIUM [Suspect]
     Indication: GASTROOESOPHAGEAL REFLUX DISEASE
     Route: 048
     Dates: start: 1996, end: 2011
  2. NEXIUM [Suspect]
     Indication: GASTROOESOPHAGEAL REFLUX DISEASE
     Route: 048
     Dates: start: 20011213
  3. NEXIUM [Suspect]
     Indication: GASTROOESOPHAGEAL REFLUX DISEASE
     Route: 048
     Dates: start: 2005
  4. NEXIUM [Suspect]
     Indication: GASTROOESOPHAGEAL REFLUX DISEASE
     Route: 048
     Dates: start: 20110330
  5. HYDROCODONE [Concomitant]
  6. IBUPROFEN [Concomitant]
  7. PROMETHAZINE [Concomitant]
  8. PREDNISONE [Concomitant]
  9. FAMOTIDINE [Concomitant]
  10. DIAZEPAM [Concomitant]
  11. VITAMIN D [Concomitant]
  12. DEXILANT [Concomitant]
  13. CRESTOR [Concomitant]
     Dates: start: 20120529
  14. AMITRIPTYLINE HCL [Concomitant]
     Dates: start: 20121106
  15. MICARDIS [Concomitant]
     Dates: start: 20121117
  16. METOPROLOL TARTRATE [Concomitant]
     Dates: start: 20120706
  17. CEFDINIR [Concomitant]
     Dates: start: 20110425
  18. LEVAQUIN [Concomitant]
     Dates: start: 20080225
  19. MELOXICAM [Concomitant]
     Dates: start: 20080225
  20. BENZONATATE [Concomitant]
     Dates: start: 20050804
  21. BEXTRA [Concomitant]
     Dates: start: 20040204
  22. LIPITOR [Concomitant]
  23. ASPIRIN [Concomitant]
  24. LOPRESSOR [Concomitant]
  25. PRILOSEC OTC [Concomitant]

REACTIONS (11)
  - Limb injury [Unknown]
  - Chest pain [Unknown]
  - Fall [Unknown]
  - Uterine disorder [Unknown]
  - Osteoporosis [Unknown]
  - Wrist fracture [Unknown]
  - Bone disorder [Unknown]
  - Wrist deformity [Unknown]
  - Pathological fracture [Unknown]
  - Androgen deficiency [Unknown]
  - Vitamin D deficiency [Unknown]
